FAERS Safety Report 10185821 (Version 7)
Quarter: 2014Q3

REPORT INFORMATION
  Report Type: Spontaneous
  Country: US (occurrence: US)
  Receive Date: 20140521
  Receipt Date: 20140704
  Transmission Date: 20150326
  Serious: Yes (Other)
  Sender: FDA-Public Use
  Company Number: US-JNJFOC-20140509211

PATIENT
  Age: 62 Year
  Sex: Female
  Weight: 83.46 kg

DRUGS (2)
  1. AZATHIOPRINE. [Suspect]
     Active Substance: AZATHIOPRINE
     Indication: CROHN^S DISEASE
     Route: 048
     Dates: start: 2007
  2. REMICADE [Suspect]
     Active Substance: INFLIXIMAB
     Indication: CROHN^S DISEASE
     Dosage: 900 MG
     Route: 042
     Dates: start: 2004

REACTIONS (3)
  - Gastric polyps [Unknown]
  - Breast hyperplasia [Unknown]
  - Oesophagitis [Unknown]

NARRATIVE: CASE EVENT DATE: 2013
